FAERS Safety Report 7250821-5 (Version None)
Quarter: 2011Q1

REPORT INFORMATION
  Report Type: 
  Country: None (occurrence: None)
  Receive Date: 20110128
  Receipt Date: 20110121
  Transmission Date: 20110831
  Serious: Yes (Hospitalization)
  Sender: FDA-Public Use
  Company Number: CA-AMGEN-KDL441911

PATIENT
  Age: 70 Year
  Sex: Female

DRUGS (14)
  1. PANTOLOC                           /01263201/ [Concomitant]
     Dosage: 40 UNK, UNK
  2. ENBREL [Suspect]
     Indication: PSORIATIC ARTHROPATHY
     Dosage: 50 MG, QWK
     Route: 058
     Dates: start: 20060618, end: 20100922
  3. NOVOLIN                            /00030501/ [Concomitant]
     Indication: DIABETES MELLITUS
     Dosage: UNK
  4. SIMVASTATIN [Concomitant]
     Dosage: 40 UNK, UNK
  5. TRENTAL [Concomitant]
     Dosage: 400 UNK, UNK
  6. LISINOPRIL [Concomitant]
     Dosage: 20 UNK, UNK
  7. HUMALOG [Concomitant]
     Indication: DIABETES MELLITUS
     Dosage: UNK
  8. ASA [Concomitant]
     Dosage: 80 UNK, UNK
  9. NITRO-DUR [Concomitant]
     Dosage: 0.4 UNK, UNK
  10. CELEBREX [Concomitant]
     Dosage: 200 UNK, UNK
  11. DIAMICRON [Concomitant]
     Dosage: 80 UNK, UNK
  12. CAL-D [Concomitant]
     Dosage: 400 UNK, UNK
  13. CARVEDILOL [Concomitant]
     Dosage: 6.25 UNK, UNK
  14. SERTRALINE HYDROCHLORIDE [Concomitant]
     Dosage: 50 UNK, UNK

REACTIONS (8)
  - VARICOSE ULCERATION [None]
  - ANGIOPLASTY [None]
  - PERIPHERAL ARTERIAL OCCLUSIVE DISEASE [None]
  - VENOUS INSUFFICIENCY [None]
  - IMPAIRED HEALING [None]
  - SUPERINFECTION [None]
  - CORONARY ARTERY BYPASS [None]
  - INFECTED SKIN ULCER [None]
